FAERS Safety Report 7450659-X (Version None)
Quarter: 2011Q2

REPORT INFORMATION
  Report Type: 
  Country: None (occurrence: None)
  Receive Date: 20110502
  Receipt Date: 20110418
  Transmission Date: 20111010
  Serious: Yes (Death)
  Sender: FDA-Public Use
  Company Number: GB-MYLANLABS-2011S1008286

PATIENT
  Age: 37 Year
  Sex: Male

DRUGS (2)
  1. FLUDARABINE [Suspect]
     Indication: STEM CELL TRANSPLANT
  2. CYCLOPHOSPHAMIDE [Suspect]
     Indication: STEM CELL TRANSPLANT
     Route: 065

REACTIONS (3)
  - SYSTEMIC MYCOSIS [None]
  - FEBRILE NEUTROPENIA [None]
  - SEPSIS [None]
